FAERS Safety Report 7001588-7 (Version None)
Quarter: 2010Q3

REPORT INFORMATION
  Report Type: 
  Country: None (occurrence: None)
  Receive Date: 20100920
  Receipt Date: 20100910
  Transmission Date: 20110219
  Serious: No
  Sender: FDA-Public Use
  Company Number: US-ROXANE LABORATORIES, INC.-2010-RO-01217RO

PATIENT
  Sex: Female

DRUGS (2)
  1. AZATHIOPRINE [Suspect]
     Indication: ILEITIS
     Dosage: 100 MG
     Route: 048
     Dates: start: 20080101
  2. AZATHIOPRINE [Suspect]
     Dosage: 125 MG
     Route: 048
     Dates: start: 20100601

REACTIONS (3)
  - ALOPECIA [None]
  - CHEST X-RAY ABNORMAL [None]
  - COUGH [None]
